FAERS Safety Report 17549738 (Version 1)
Quarter: 2020Q1

REPORT INFORMATION
  Report Type: Spontaneous
  Country: US (occurrence: US)
  Receive Date: 20200313
  Receipt Date: 20200313
  Transmission Date: 20200409
  Serious: No
  Sender: FDA-Public Use
  Company Number: None

PATIENT
  Age: 70 Year
  Sex: Male

DRUGS (1)
  1. LUNESTA [Suspect]
     Active Substance: ESZOPICLONE
     Indication: SLEEP DISORDER THERAPY
     Route: 047

REACTIONS (2)
  - Conjunctivitis [None]
  - Dry eye [None]

NARRATIVE: CASE EVENT DATE: 20200202
